FAERS Safety Report 21372260 (Version 1)
Quarter: 2022Q3

REPORT INFORMATION
  Report Type: Report from Study
  Country: BR (occurrence: BR)
  Receive Date: 20220924
  Receipt Date: 20220924
  Transmission Date: 20221027
  Serious: Yes (Hospitalization)
  Sender: FDA-Public Use
  Company Number: BR-NOVARTISPH-NVSC2022BR215048

PATIENT
  Sex: Female

DRUGS (1)
  1. DIOVAN [Suspect]
     Active Substance: VALSARTAN
     Indication: Product used for unknown indication
     Dosage: UNK (STRENGTH 320)
     Route: 065

REACTIONS (3)
  - Tympanic membrane perforation [Not Recovered/Not Resolved]
  - Urinary tract infection [Recovered/Resolved]
  - Concomitant disease aggravated [Recovered/Resolved with Sequelae]
